FAERS Safety Report 17654332 (Version 1)
Quarter: 2020Q2

REPORT INFORMATION
  Report Type: Spontaneous
  Country: US (occurrence: US)
  Receive Date: 20200409
  Receipt Date: 20200409
  Transmission Date: 20200713
  Serious: Yes (Life-Threatening)
  Sender: FDA-Public Use
  Company Number: None

PATIENT
  Age: 71 Year
  Sex: Male

DRUGS (1)
  1. MORPHINE (MORPHINE SO4 2MG/ML INJ) [Suspect]
     Active Substance: MORPHINE
     Indication: PAIN
     Dosage: ?          OTHER FREQUENCY:OTHER;?
     Route: 042
     Dates: start: 20150815, end: 20150815

REACTIONS (1)
  - Sedation [None]

NARRATIVE: CASE EVENT DATE: 20150815
